FAERS Safety Report 10175692 (Version 2)
Quarter: 2014Q3

REPORT INFORMATION
  Report Type: Spontaneous
  Country: US (occurrence: US)
  Receive Date: 20140516
  Receipt Date: 20140721
  Transmission Date: 20150326
  Serious: No
  Sender: FDA-Public Use
  Company Number: US-009507513-1405USA003399

PATIENT
  Age: 64 Year
  Sex: Male
  Weight: 91.61 kg

DRUGS (20)
  1. PEGINTRON [Suspect]
     Active Substance: PEGINTERFERON ALFA-2B
     Dosage: 150 MICROGRAM /0.5 ML, WEEKLY AS DIRECTED
     Route: 058
     Dates: start: 201404
  2. AMBIEN [Concomitant]
     Active Substance: ZOLPIDEM TARTRATE
     Route: 048
  3. FLAXSEED [Concomitant]
     Active Substance: FLAX SEED
     Route: 048
  4. OMEGA-3 MARINE TRIGLYCERIDES [Concomitant]
     Active Substance: FISH OIL
     Route: 048
  5. NATURE MADE TRIPLE FLEX [Concomitant]
     Route: 048
  6. MILK THISTLE [Concomitant]
     Active Substance: MILK THISTLE
     Route: 048
  7. RIBASPHERE RIBAPAK [Suspect]
     Active Substance: RIBAVIRIN
     Dosage: 1200 / DAY
     Route: 048
  8. METRONIDAZOLE. [Concomitant]
     Active Substance: METRONIDAZOLE
     Route: 048
  9. URSODIOL. [Concomitant]
     Active Substance: URSODIOL
     Route: 048
  10. VITAMIN E [Concomitant]
     Active Substance: .ALPHA.-TOCOPHEROL
     Dosage: STRENGTH: 400 UNIT
     Route: 048
  11. GINSENG (UNSPECIFIED) [Concomitant]
     Route: 048
  12. ASCORBIC ACID. [Concomitant]
     Active Substance: ASCORBIC ACID
     Route: 048
  13. SOVALDI [Concomitant]
     Active Substance: SOFOSBUVIR
     Route: 048
  14. EFFEXOR XR [Concomitant]
     Active Substance: VENLAFAXINE HYDROCHLORIDE
     Route: 048
  15. LISINOPRIL (+) HYDROCHLOROTHIAZIDE [Concomitant]
     Active Substance: HYDROCHLOROTHIAZIDE\LISINOPRIL
     Route: 048
  16. ROZEREM [Concomitant]
     Active Substance: RAMELTEON
     Route: 048
  17. MORPHINE SULFATE. [Concomitant]
     Active Substance: MORPHINE SULFATE
     Route: 048
  18. NATURES OWN PROSTATE HEALTH [Concomitant]
     Route: 048
  19. CALCIUM (UNSPECIFIED) (+) VITAMIN D (UNSPECIFIED) [Concomitant]
     Active Substance: CALCIUM CARBONATE\VITAMIN D
     Route: 048
  20. VITAMINS (UNSPECIFIED) [Concomitant]
     Active Substance: VITAMINS
     Route: 048

REACTIONS (8)
  - Abnormal behaviour [Unknown]
  - Violence-related symptom [Unknown]
  - Pain [Unknown]
  - Headache [Unknown]
  - Anger [Unknown]
  - Mood altered [Recovered/Resolved]
  - Anger [Unknown]
  - Dizziness [Unknown]

NARRATIVE: CASE EVENT DATE: 20140430
